FAERS Safety Report 5168026-0 (Version None)
Quarter: 2006Q4

REPORT INFORMATION
  Report Type: 
  Country: None (occurrence: None)
  Receive Date: 20061208
  Receipt Date: 20060308
  Transmission Date: 20070319
  Serious: No
  Sender: FDA-Public Use
  Company Number: US-GLAXOSMITHKLINE-A0596746A

PATIENT
  Age: 54 Year
  Sex: Male

DRUGS (3)
  1. AVANDAMET [Suspect]
     Dosage: 1TAB TWICE PER DAY
     Route: 048
     Dates: start: 20050101
  2. COUGH SYRUP [Concomitant]
     Indication: COUGH
     Route: 048
  3. ACTOS [Concomitant]

REACTIONS (2)
  - BLOOD GLUCOSE INCREASED [None]
  - WEIGHT DECREASED [None]
